FAERS Safety Report 10715444 (Version 2)
Quarter: 2015Q1

REPORT INFORMATION
  Report Type: Spontaneous
  Country: US (occurrence: US)
  Receive Date: 20150116
  Receipt Date: 20150120
  Transmission Date: 20150721
  Serious: Yes (Hospitalization, Other)
  Sender: FDA-Public Use
  Company Number: US-AMGEN-USASP2015003189

PATIENT
  Age: 55 Year
  Sex: Female

DRUGS (1)
  1. ENBREL [Suspect]
     Active Substance: ETANERCEPT
     Indication: PSORIATIC ARTHROPATHY
     Dosage: 50 MG, QWK
     Route: 065
     Dates: start: 20131204

REACTIONS (4)
  - Knee arthroplasty [Recovered/Resolved]
  - Back pain [Not Recovered/Not Resolved]
  - Ligament rupture [Recovered/Resolved]
  - Chondropathy [Recovered/Resolved]

NARRATIVE: CASE EVENT DATE: 201408
